FAERS Safety Report 14978139 (Version 1)
Quarter: 2018Q2

REPORT INFORMATION
  Report Type: Report from Study
  Country: AR (occurrence: AR)
  Receive Date: 20180606
  Receipt Date: 20180606
  Transmission Date: 20180711
  Serious: Yes (Other)
  Sender: FDA-Public Use
  Company Number: AR-TEVA-2018-AR-901554

PATIENT
  Sex: Female

DRUGS (2)
  1. COPAXONE [Suspect]
     Active Substance: GLATIRAMER ACETATE
     Dosage: 20 MILLIGRAM/MILLILITERS DAILY;
     Route: 058
     Dates: start: 201006
  2. COPAXONE [Suspect]
     Active Substance: GLATIRAMER ACETATE
     Dosage: SINCE UNSPECIFIED DATE
     Route: 058

REACTIONS (9)
  - Dyspnoea [Unknown]
  - Throat tightness [Unknown]
  - Swelling [Unknown]
  - Hypersensitivity [Unknown]
  - Panic reaction [Unknown]
  - Erythema [Unknown]
  - Fear [Unknown]
  - Pain [Unknown]
  - Palpitations [Unknown]
